FAERS Safety Report 25338030 (Version 1)
Quarter: 2025Q2

REPORT INFORMATION
  Report Type: Spontaneous
  Country: US (occurrence: US)
  Receive Date: 20250520
  Receipt Date: 20250520
  Transmission Date: 20250716
  Serious: No
  Sender: CALLIDITAS THERAPEUTICS AB
  Company Number: US-Calliditas-2025CAL01259

PATIENT
  Age: 43 Year
  Sex: Male

DRUGS (12)
  1. TARPEYO [Suspect]
     Active Substance: BUDESONIDE
     Indication: IgA nephropathy
     Dosage: TAKE 2 CAPSULES (8 MG) BY MOUTH ONCE DAILY
     Route: 048
     Dates: start: 20250425
  2. ACETAMINOPHEN\ASCORBIC ACID [Concomitant]
     Active Substance: ACETAMINOPHEN\ASCORBIC ACID
  3. BIOTIN [Concomitant]
     Active Substance: BIOTIN
  4. ENVARSUS XR [Concomitant]
     Active Substance: TACROLIMUS
  5. EPLERENONE [Concomitant]
     Active Substance: EPLERENONE
  6. FILSPARI [Concomitant]
     Active Substance: SPARSENTAN
  7. FISH OIL [Concomitant]
     Active Substance: FISH OIL
  8. FLUCONAZOLE [Concomitant]
     Active Substance: FLUCONAZOLE
  9. LOSARTAN [Concomitant]
     Active Substance: LOSARTAN
  10. MYCOPHENOLIC ACID [Concomitant]
     Active Substance: MYCOPHENOLIC ACID
  11. PREDNISONE [Concomitant]
     Active Substance: PREDNISONE
  12. VITAMIN D3 [Concomitant]
     Active Substance: CHOLECALCIFEROL

REACTIONS (3)
  - Swelling face [Unknown]
  - Joint swelling [Unknown]
  - Prescribed underdose [Unknown]
